FAERS Safety Report 7485055-2 (Version None)
Quarter: 2011Q2

REPORT INFORMATION
  Report Type: 
  Country: None (occurrence: None)
  Receive Date: 20110517
  Receipt Date: 20101108
  Transmission Date: 20111010
  Serious: Yes (Hospitalization)
  Sender: FDA-Public Use
  Company Number: US-BAYER-201024613NA

PATIENT
  Age: 41 Year
  Sex: Female
  Weight: 80 kg

DRUGS (6)
  1. FERROUS SULFATE TAB [Concomitant]
  2. YAZ [Suspect]
     Indication: MENORRHAGIA
     Route: 048
     Dates: start: 20071201, end: 20080115
  3. LIPITOR [Concomitant]
  4. LEVAQUIN [Concomitant]
     Indication: UPPER RESPIRATORY TRACT INFECTION
  5. SYNTHROID [Concomitant]
  6. DEXAMETHASONE [Concomitant]
     Dates: start: 19651130

REACTIONS (4)
  - PAIN IN EXTREMITY [None]
  - THROMBOSIS [None]
  - DEEP VEIN THROMBOSIS [None]
  - FATIGUE [None]
